FAERS Safety Report 12803677 (Version 1)
Quarter: 2016Q4

REPORT INFORMATION
  Report Type: Spontaneous
  Country: US (occurrence: US)
  Receive Date: 20161003
  Receipt Date: 20161003
  Transmission Date: 20170207
  Serious: Yes (Other)
  Sender: FDA-Public Use
  Company Number: US-MALLINCKRODT-T201604694

PATIENT
  Age: 80 Year
  Sex: Male

DRUGS (1)
  1. THALLOUS CHLORIDE TL 201 [Suspect]
     Active Substance: THALLOUS CHLORIDE TL-201
     Indication: SCAN MYOCARDIAL PERFUSION
     Dosage: 3.5 MCI, SINGLE
     Route: 042
     Dates: start: 20160925

REACTIONS (3)
  - Unresponsive to stimuli [Recovered/Resolved]
  - Snoring [Recovered/Resolved]
  - Hyperhidrosis [Recovered/Resolved]

NARRATIVE: CASE EVENT DATE: 20160925
